FAERS Safety Report 4880774-6 (Version None)
Quarter: 2006Q1

REPORT INFORMATION
  Report Type: 
  Country: None (occurrence: None)
  Receive Date: 20060111
  Receipt Date: 20050415
  Transmission Date: 20060701
  Serious: No
  Sender: FDA-Public Use
  Company Number: 2004S1000281

PATIENT
  Age: 65 Year

DRUGS (33)
  1. CUBICIN [Suspect]
     Indication: ENTEROCOCCAL INFECTION
     Dosage: 350 MG; Q24H; IV
     Route: 042
     Dates: start: 20041129, end: 20050224
  2. HYDROCORTISONE [Concomitant]
  3. TACROLIMUS [Concomitant]
  4. METHYLPREDNISOLONE [Concomitant]
  5. LANSOPRAZOLE [Concomitant]
  6. SUCRALFATE [Concomitant]
  7. PANTOPRAZOLE [Concomitant]
  8. FAMOTIDINE [Concomitant]
  9. METOCLOPRAMIDE [Concomitant]
  10. TPN [Concomitant]
  11. MAGNESIUM SULFATE [Concomitant]
  12. POTASSIUM CHLORIDE [Concomitant]
  13. SODIUM BICARBONATE [Concomitant]
  14. REGULAR INSULIN [Concomitant]
  15. FAT EMULSIONS [Concomitant]
  16. FUROSEMIDE [Concomitant]
  17. LORAZEPAM [Concomitant]
  18. ASPIRIN [Concomitant]
  19. MEROPENEM [Concomitant]
  20. AMPHOTERICIN B FOR INJECTION [Concomitant]
  21. AMIKACIN [Concomitant]
  22. CEFEPIME [Concomitant]
  23. VANCOMYCIN [Concomitant]
  24. LINEZOLID [Concomitant]
  25. GANCICLOVIR [Concomitant]
  26. ACETAZOLAMIDE [Concomitant]
  27. DOPAMINE [Concomitant]
  28. VASOPRESSIN [Concomitant]
  29. AZTREONAM [Concomitant]
  30. METRONIDAZOLE [Concomitant]
  31. COLISTIN [Concomitant]
  32. TOBRAMYCIN [Concomitant]
  33. THYMOGLOBULIN [Concomitant]

REACTIONS (1)
  - INTERNATIONAL NORMALISED RATIO INCREASED [None]
